FAERS Safety Report 11319380 (Version 1)
Quarter: 2015Q3

REPORT INFORMATION
  Report Type: Spontaneous
  Country: US (occurrence: US)
  Receive Date: 20150729
  Receipt Date: 20150729
  Transmission Date: 20151125
  Serious: Yes (Hospitalization, Other)
  Sender: FDA-Public Use
  Company Number: PHEH2015US014364

PATIENT
  Sex: Female
  Weight: 58.3 kg

DRUGS (1)
  1. EXJADE [Suspect]
     Active Substance: DEFERASIROX
     Indication: IRON OVERLOAD
     Dosage: ALTERNATING 1000 MG, 1500 DAILY, QD
     Route: 048
     Dates: start: 20140310

REACTIONS (1)
  - Pain [Unknown]
